FAERS Safety Report 25996365 (Version 1)
Quarter: 2025Q4

REPORT INFORMATION
  Report Type: Spontaneous
  Country: EU (occurrence: EU)
  Receive Date: 20251104
  Receipt Date: 20251104
  Transmission Date: 20260117
  Serious: Yes (Death, Life-Threatening, Hospitalization, Other)
  Sender: MYLAN
  Company Number: EU-002147023-NVSC2025FR161533

PATIENT
  Age: 43 Year
  Sex: Male
  Weight: 186 kg

DRUGS (20)
  1. MYCOPHENOLATE MOFETIL [Suspect]
     Active Substance: MYCOPHENOLATE MOFETIL
     Indication: Product used for unknown indication
     Dosage: 2 GRAM
  2. MYCOPHENOLATE MOFETIL [Suspect]
     Active Substance: MYCOPHENOLATE MOFETIL
     Dosage: 2 GRAM
     Route: 048
  3. MYCOPHENOLATE MOFETIL [Suspect]
     Active Substance: MYCOPHENOLATE MOFETIL
     Dosage: 2 GRAM
     Route: 048
  4. MYCOPHENOLATE MOFETIL [Suspect]
     Active Substance: MYCOPHENOLATE MOFETIL
     Dosage: 2 GRAM
  5. CYCLOSPORINE [Suspect]
     Active Substance: CYCLOSPORINE
     Indication: Product used for unknown indication
     Dosage: UNK (220MG-280MG-360MG-400MG)
  6. CYCLOSPORINE [Suspect]
     Active Substance: CYCLOSPORINE
     Dosage: UNK (220MG-280MG-360MG-400MG)
     Route: 042
  7. CYCLOSPORINE [Suspect]
     Active Substance: CYCLOSPORINE
     Dosage: UNK (220MG-280MG-360MG-400MG)
     Route: 042
  8. CYCLOSPORINE [Suspect]
     Active Substance: CYCLOSPORINE
     Dosage: UNK (220MG-280MG-360MG-400MG)
  9. FLUDARABINE [Concomitant]
     Active Substance: FLUDARABINE PHOSPHATE
     Indication: Product used for unknown indication
     Dosage: 60 MG, QD
     Dates: start: 20241012, end: 20241014
  10. FLUDARABINE [Concomitant]
     Active Substance: FLUDARABINE PHOSPHATE
     Dosage: 60 MG, QD
     Route: 042
     Dates: start: 20241012, end: 20241014
  11. FLUDARABINE [Concomitant]
     Active Substance: FLUDARABINE PHOSPHATE
     Dosage: 60 MG, QD
     Route: 042
     Dates: start: 20241012, end: 20241014
  12. FLUDARABINE [Concomitant]
     Active Substance: FLUDARABINE PHOSPHATE
     Dosage: 60 MG, QD
     Dates: start: 20241012, end: 20241014
  13. CYCLOPHOSPHAMIDE [Concomitant]
     Active Substance: CYCLOPHOSPHAMIDE
     Indication: Product used for unknown indication
     Dosage: 380 MILLIGRAM
     Dates: start: 20241019, end: 20241020
  14. CYCLOPHOSPHAMIDE [Concomitant]
     Active Substance: CYCLOPHOSPHAMIDE
     Dosage: 380 MILLIGRAM
     Route: 042
     Dates: start: 20241019, end: 20241020
  15. CYCLOPHOSPHAMIDE [Concomitant]
     Active Substance: CYCLOPHOSPHAMIDE
     Dosage: 380 MILLIGRAM
     Route: 042
     Dates: start: 20241019, end: 20241020
  16. CYCLOPHOSPHAMIDE [Concomitant]
     Active Substance: CYCLOPHOSPHAMIDE
     Dosage: 380 MILLIGRAM
     Dates: start: 20241019, end: 20241020
  17. THIOTEPA [Concomitant]
     Active Substance: THIOTEPA
     Indication: Product used for unknown indication
     Dosage: UNK
  18. THIOTEPA [Concomitant]
     Active Substance: THIOTEPA
     Dosage: UNK
     Route: 065
  19. THIOTEPA [Concomitant]
     Active Substance: THIOTEPA
     Dosage: UNK
     Route: 065
  20. THIOTEPA [Concomitant]
     Active Substance: THIOTEPA
     Dosage: UNK

REACTIONS (1)
  - Engraft failure [Fatal]

NARRATIVE: CASE EVENT DATE: 20241112
